FAERS Safety Report 8256955-0 (Version None)
Quarter: 2012Q1

REPORT INFORMATION
  Report Type: 
  Country: None (occurrence: None)
  Receive Date: 20120224
  Receipt Date: 20120224
  Transmission Date: 20120608
  Serious: Yes (Other)
  Sender: FDA-Public Use
  Company Number: None

PATIENT
  Age: 32 Year
  Sex: Female
  Weight: 61.2356 kg

DRUGS (2)
  1. BLUE PEEL RADIANCE (NO PREF. NAME) [Suspect]
     Indication: MICROGRAPHIC SKIN SURGERY
     Dosage: X1;TOP
     Route: 061
     Dates: start: 20120209, end: 20120209
  2. KLONOPIN [Concomitant]

REACTIONS (3)
  - SWELLING [None]
  - ERYTHEMA [None]
  - EYE SWELLING [None]
